FAERS Safety Report 10174721 (Version 2)
Quarter: 2015Q3

REPORT INFORMATION
  Report Type: Spontaneous
  Country: DK (occurrence: DK)
  Receive Date: 20140515
  Receipt Date: 20150813
  Transmission Date: 20151125
  Serious: Yes (Hospitalization)
  Sender: FDA-Public Use
  Company Number: DK-PFIZER INC-2014130188

PATIENT
  Age: 60 Year
  Sex: Male

DRUGS (5)
  1. SALAZOPYRIN EN-TABS [Suspect]
     Active Substance: SULFASALAZINE
     Indication: OSTEOARTHRITIS
     Dosage: 500 MG, 1X/DAY
     Route: 048
     Dates: start: 20131223, end: 20140212
  2. SIMVASTATIN. [Concomitant]
     Active Substance: SIMVASTATIN
     Indication: CARDIOVASCULAR DISORDER
  3. ANCOZAN COMP [Concomitant]
     Active Substance: HYDROCHLOROTHIAZIDE\LOSARTAN POTASSIUM
     Indication: HYPERTENSION
     Dosage: UNK, 1X/DAY
     Dates: start: 20130205
  4. SIMVASTATIN. [Concomitant]
     Active Substance: SIMVASTATIN
     Indication: PROPHYLAXIS
     Dosage: 40 MG, 1X/DAY
     Dates: start: 20121019
  5. OPRYMEA [Concomitant]
     Indication: RESTLESS LEGS SYNDROME
     Dosage: 0.18 MG, DAILY
     Dates: start: 20121123

REACTIONS (2)
  - Haematemesis [Unknown]
  - Gastric ulcer [Unknown]

NARRATIVE: CASE EVENT DATE: 20140212
